FAERS Safety Report 10923626 (Version 2)
Quarter: 2015Q2

REPORT INFORMATION
  Report Type: Spontaneous
  Country: US (occurrence: US)
  Receive Date: 20150318
  Receipt Date: 20150526
  Transmission Date: 20150821
  Serious: Yes (Other)
  Sender: FDA-Public Use
  Company Number: US-JNJFOC-20141010338

PATIENT
  Age: 84 Year
  Sex: Male
  Weight: 129 kg

DRUGS (1)
  1. HALOPERIDOL. [Suspect]
     Active Substance: HALOPERIDOL
     Indication: MANIA
     Route: 065

REACTIONS (1)
  - Neuroleptic malignant syndrome [Unknown]
